FAERS Safety Report 4786901-3 (Version None)
Quarter: 2005Q4

REPORT INFORMATION
  Report Type: 
  Country: None (occurrence: None)
  Receive Date: 20051004
  Receipt Date: 20050921
  Transmission Date: 20060501
  Serious: Yes (Other)
  Sender: FDA-Public Use
  Company Number: JP-NOVOPROD-247311

PATIENT
  Age: 56 Year
  Sex: Female
  Weight: 36 kg

DRUGS (2)
  1. NOVOLIN R [Suspect]
     Indication: DIABETES MELLITUS
     Dosage: 18 IU, UNK
     Dates: start: 20050401
  2. NOVOLIN N [Suspect]
     Indication: DIABETES MELLITUS
     Dosage: 4 IU, UNK
     Dates: start: 20050401

REACTIONS (6)
  - BALLISMUS [None]
  - CONDITION AGGRAVATED [None]
  - DYSKINESIA [None]
  - GLYCOSYLATED HAEMOGLOBIN INCREASED [None]
  - HYPOGLYCAEMIA [None]
  - VISUAL ACUITY REDUCED [None]
